FAERS Safety Report 4722508-1 (Version None)
Quarter: 2005Q3

REPORT INFORMATION
  Report Type: 
  Country: None (occurrence: None)
  Receive Date: 20050722
  Receipt Date: 20050523
  Transmission Date: 20060218
  Serious: No
  Sender: FDA-Public Use
  Company Number: US-GLAXOSMITHKLINE-A0559756A

PATIENT
  Age: 48 Year
  Sex: Male

DRUGS (3)
  1. AVANDIA [Suspect]
     Dosage: 2MG TWICE PER DAY
     Route: 048
     Dates: start: 20050512
  2. METFORMIN [Suspect]
     Dosage: 500MG TWICE PER DAY
     Dates: start: 20050512
  3. NO CONCURRENT MEDICATION [Concomitant]

REACTIONS (1)
  - VISION BLURRED [None]
